FAERS Safety Report 26000881 (Version 1)
Quarter: 2025Q4

REPORT INFORMATION
  Report Type: Other
  Country: CN (occurrence: CN)
  Receive Date: 20251105
  Receipt Date: 20251105
  Transmission Date: 20260118
  Serious: Yes (Other)
  Sender: BRECKENRIDGE PHARMACEUTICAL, INC.
  Company Number: CN-Breckenridge Pharmaceutical, Inc.-2187939

PATIENT
  Age: 44 Year
  Sex: Female

DRUGS (1)
  1. EXEMESTANE [Suspect]
     Active Substance: EXEMESTANE
     Indication: Breast cancer

REACTIONS (1)
  - Maculopathy [Recovered/Resolved with Sequelae]
